FAERS Safety Report 20425449 (Version 1)
Quarter: 2022Q1

REPORT INFORMATION
  Report Type: Report from Study
  Country: US (occurrence: US)
  Receive Date: 20220204
  Receipt Date: 20220204
  Transmission Date: 20220423
  Serious: No
  Sender: FDA-Public Use
  Company Number: US-EXELIXIS-CABO-21039165

PATIENT
  Sex: Male

DRUGS (4)
  1. CABOMETYX [Suspect]
     Active Substance: CABOZANTINIB S-MALATE
     Indication: Renal cell carcinoma
     Dosage: 60 MG, QD
     Route: 048
     Dates: start: 20170119
  2. CABOMETYX [Suspect]
     Active Substance: CABOZANTINIB S-MALATE
     Dosage: 40 MG, QD (FOR TWO DAYS)
     Route: 048
  3. CABOMETYX [Suspect]
     Active Substance: CABOZANTINIB S-MALATE
     Dosage: 20 MG, QD (ON THIRD DAY)
     Route: 048
  4. ELIQUIS [Concomitant]
     Active Substance: APIXABAN

REACTIONS (7)
  - Pulmonary oedema [Unknown]
  - Pericardial effusion [Unknown]
  - Nail growth abnormal [Unknown]
  - Oedema peripheral [Unknown]
  - Diarrhoea [Unknown]
  - Dehydration [Unknown]
  - Metastases to lung [Unknown]
